FAERS Safety Report 7833674-3 (Version None)
Quarter: 2011Q4

REPORT INFORMATION
  Report Type: 
  Country: None (occurrence: None)
  Receive Date: 20111024
  Receipt Date: 20111014
  Transmission Date: 20120403
  Serious: Yes (Hospitalization)
  Sender: FDA-Public Use
  Company Number: FR-SANOFI-AVENTIS-2011SA058361

PATIENT
  Age: 62 Year
  Sex: Male
  Weight: 79 kg

DRUGS (12)
  1. LEVOTHYROXINE SODIUM [Concomitant]
     Route: 048
  2. DIGOXIN [Concomitant]
     Dosage: DOSE:1 UNIT(S)
     Route: 048
  3. POTASSIUM CHLORIDE [Concomitant]
     Route: 048
  4. NITROGLYCERIN [Concomitant]
     Route: 062
  5. ROSUVASTATIN CALCIUM [Concomitant]
     Route: 048
  6. TAXOTERE [Suspect]
     Indication: PROSTATE CANCER METASTATIC
     Route: 042
     Dates: end: 20110729
  7. FLUTICASONE PROPIONATE/SALMETEROL [Concomitant]
     Route: 055
  8. TRANDOLAPRIL [Concomitant]
     Route: 048
  9. CASODEX [Concomitant]
     Route: 048
  10. PLAVIX [Concomitant]
     Route: 048
  11. LASIX [Concomitant]
     Route: 048
  12. ASPIRIN [Concomitant]
     Route: 048

REACTIONS (3)
  - PNEUMATOSIS INTESTINALIS [None]
  - VOMITING [None]
  - DIARRHOEA [None]
